FAERS Safety Report 7400559-6 (Version None)
Quarter: 2011Q1

REPORT INFORMATION
  Report Type: 
  Country: None (occurrence: None)
  Receive Date: 20110329
  Receipt Date: 20110322
  Transmission Date: 20110831
  Serious: Yes (Hospitalization)
  Sender: FDA-Public Use
  Company Number: WAES 1103USA02414

PATIENT
  Age: 71 Year
  Sex: Male
  Weight: 87.9978 kg

DRUGS (19)
  1. LASIX [Concomitant]
  2. PRINIVIL [Suspect]
     Dosage: PO
     Route: 048
     Dates: start: 20110301
  3. PRINIVIL [Suspect]
     Dosage: PO
     Route: 048
     Dates: start: 20050309, end: 20110228
  4. PREDNISONE [Concomitant]
  5. EPLERENONE [Suspect]
     Indication: CARDIAC FAILURE CONGESTIVE
     Dosage: 25 MG, QOD, PO
     Route: 048
     Dates: start: 20100915
  6. AMIODARONE HCL [Concomitant]
  7. AVELOX [Concomitant]
  8. LIRAGLUTIDE [Concomitant]
  9. FLOMAX [Concomitant]
  10. LANTUS [Concomitant]
  11. NOVOLOG [Concomitant]
  12. PERCOCET [Concomitant]
  13. WARFARIN SODIUM [Concomitant]
  14. COREG [Suspect]
     Dosage: PO
     Route: 048
     Dates: start: 20050309, end: 20110228
  15. COREG [Suspect]
     Dosage: PO
     Route: 048
     Dates: start: 20110301
  16. METHIMAZOL [Concomitant]
  17. ASPIRIN [Concomitant]
  18. CYANOCOBALAMIN [Concomitant]
  19. SIMVASTATIN [Concomitant]

REACTIONS (4)
  - ATRIAL FLUTTER [None]
  - FATIGUE [None]
  - HYPOTENSION [None]
  - ASTHENIA [None]
